FAERS Safety Report 12957184 (Version 2)
Quarter: 2016Q4

REPORT INFORMATION
  Report Type: Report from Study
  Country: DE (occurrence: DE)
  Receive Date: 20161118
  Receipt Date: 20161205
  Transmission Date: 20170207
  Serious: Yes (Hospitalization, Other)
  Sender: FDA-Public Use
  Company Number: DE-BAYER-2016-039804

PATIENT
  Age: 81 Year
  Sex: Male
  Weight: 70 kg

DRUGS (7)
  1. XARELTO [Suspect]
     Active Substance: RIVAROXABAN
     Indication: ATRIAL FIBRILLATION
     Dosage: 15 MG, QD
     Route: 048
     Dates: start: 2013, end: 20160222
  2. HEPARIN [Concomitant]
     Active Substance: HEPARIN SODIUM
     Dosage: 40 MG, BID
     Dates: start: 20160301
  3. XARELTO [Suspect]
     Active Substance: RIVAROXABAN
     Indication: CEREBROVASCULAR ACCIDENT PROPHYLAXIS
  4. METAMIZOL [Concomitant]
     Active Substance: METAMIZOLE SODIUM
     Dosage: QID
     Dates: start: 20160225
  5. ENOXAPARIN [Suspect]
     Active Substance: ENOXAPARIN
     Dosage: 40 MG, BID
     Dates: start: 20160223, end: 20160301
  6. ACETYLSALICYLIC ACID({=100 MG) [Suspect]
     Active Substance: ASPIRIN
     Dosage: 100 MG, OM
     Dates: end: 20160301
  7. HEPARIN [Concomitant]
     Active Substance: HEPARIN SODIUM
     Dosage: 40 MG, OM
     Dates: start: 20160223, end: 20160301

REACTIONS (14)
  - Peripheral swelling [None]
  - Haemorrhage intracranial [Recovered/Resolved]
  - Pleural effusion [None]
  - Traumatic intracranial haemorrhage [Recovered/Resolved]
  - Spinal cord haemorrhage [Recovered/Resolved]
  - Amnesia [None]
  - Road traffic accident [Not Recovered/Not Resolved]
  - Craniocerebral injury [None]
  - Skin abrasion [None]
  - Left ventricular dysfunction [None]
  - Dyspnoea [None]
  - Lung infiltration [None]
  - Rib fracture [None]
  - Pulmonary congestion [None]

NARRATIVE: CASE EVENT DATE: 20160222
